FAERS Safety Report 8852652 (Version 1)
Quarter: 2012Q4

REPORT INFORMATION
  Report Type: 
  Country: GB (occurrence: GB)
  Receive Date: 20121022
  Receipt Date: 20121022
  Transmission Date: 20130627
  Serious: Yes (Other)
  Sender: FDA-Public Use
  Company Number: GB-PFIZER INC-2012260744

PATIENT
  Age: 61 Year
  Sex: Male

DRUGS (4)
  1. MINOXIDIL [Suspect]
     Indication: HYPERTENSION
     Dosage: 100 mg, daily
     Route: 048
  2. AMLODIPINE [Concomitant]
     Indication: HYPERTENSION
     Dosage: UNK
  3. DOXAZOSIN [Concomitant]
     Indication: HYPERTENSION
     Dosage: UNK
  4. ALLOPURINOL [Concomitant]
     Indication: GOUT
     Dosage: UNK

REACTIONS (2)
  - Pseudofolliculitis barbae [Recovering/Resolving]
  - Dermatitis papillaris capillitii [Recovered/Resolved]
